FAERS Safety Report 24938042 (Version 4)
Quarter: 2025Q3

REPORT INFORMATION
  Report Type: Report from Study
  Country: EU (occurrence: EU)
  Receive Date: 20250206
  Receipt Date: 20250701
  Transmission Date: 20251021
  Serious: Yes (Life-Threatening, Hospitalization)
  Sender: JOHNSON AND JOHNSON
  Company Number: EU-JNJFOC-20250196201

PATIENT
  Age: 68 Year
  Sex: Male
  Weight: 75 kg

DRUGS (2)
  1. TALQUETAMAB [Suspect]
     Active Substance: TALQUETAMAB
     Indication: Plasma cell myeloma
     Route: 058
     Dates: start: 20240305
  2. VALSARTAN [Concomitant]
     Active Substance: VALSARTAN
     Indication: Hypertension

REACTIONS (2)
  - Cytokine release syndrome [Recovered/Resolved]
  - Tumour lysis syndrome [Recovered/Resolved]

NARRATIVE: CASE EVENT DATE: 20240306
